FAERS Safety Report 8018950-6 (Version None)
Quarter: 2011Q4

REPORT INFORMATION
  Report Type: 
  Country: None (occurrence: None)
  Receive Date: 20111227
  Receipt Date: 20111212
  Transmission Date: 20120403
  Serious: Yes (Hospitalization)
  Sender: FDA-Public Use
  Company Number: 2011AP002908

PATIENT
  Age: 46 Year
  Sex: Female

DRUGS (3)
  1. PHENETHYLAMINE HYDROCHLORIDE [Suspect]
     Dosage: 500 M
  2. TRAZODONE HYDROCHLORIDE [Suspect]
     Indication: BIPOLAR DISORDER
  3. ISOCARBOXAZID [Suspect]
     Indication: BIPOLAR DISORDER

REACTIONS (11)
  - TOXICITY TO VARIOUS AGENTS [None]
  - PALPITATIONS [None]
  - PULMONARY CONGESTION [None]
  - WHEEZING [None]
  - DEPRESSION [None]
  - ACUTE MYOCARDIAL INFARCTION [None]
  - BLOOD PRESSURE INCREASED [None]
  - CONDITION AGGRAVATED [None]
  - HEADACHE [None]
  - STRESS CARDIOMYOPATHY [None]
  - PULMONARY OEDEMA [None]
